FAERS Safety Report 25431149 (Version 1)
Quarter: 2025Q2

REPORT INFORMATION
  Report Type: Spontaneous
  Country: US (occurrence: None)
  Receive Date: 20250613
  Receipt Date: 20250613
  Transmission Date: 20250717
  Serious: No
  Sender: OREXO
  Company Number: US-Orexo US, Inc.-ORE202412-000044

PATIENT
  Sex: Female

DRUGS (1)
  1. ZUBSOLV [Suspect]
     Active Substance: BUPRENORPHINE HYDROCHLORIDE\NALOXONE HYDROCHLORIDE
     Indication: Pain
     Route: 060

REACTIONS (2)
  - Therapeutic product effect decreased [Unknown]
  - Product use in unapproved indication [Unknown]
